FAERS Safety Report 6739317-4 (Version None)
Quarter: 2010Q2

REPORT INFORMATION
  Report Type: 
  Country: None (occurrence: None)
  Receive Date: 20100517
  Receipt Date: 20100209
  Transmission Date: 20101027
  Serious: Yes (Other)
  Sender: FDA-Public Use
  Company Number: ALL1-2010-00771

PATIENT
  Sex: Male

DRUGS (1)
  1. FOSRENOL [Suspect]
     Indication: HYPERPHOSPHATAEMIA
     Dosage: 2000 MG, TWO 1000 MG WITH EACH MEAL, ORAL ; 1000 MG, WITH SNACKS, ORAL
     Route: 048

REACTIONS (1)
  - HYPOTENSION [None]
